FAERS Safety Report 9863386 (Version 2)
Quarter: 2014Q1

REPORT INFORMATION
  Report Type: Report from Study
  Country: TW (occurrence: TW)
  Receive Date: 20140203
  Receipt Date: 20140321
  Transmission Date: 20141002
  Serious: Yes (Other)
  Sender: FDA-Public Use
  Company Number: PHHY2014TW012641

PATIENT
  Age: 72 Year
  Sex: Male
  Weight: 58 kg

DRUGS (22)
  1. AMN107 [Suspect]
     Indication: CHRONIC MYELOID LEUKAEMIA
     Dosage: 600 MG, DAILY
     Dates: start: 20111219
  2. ACETYLSALICYLIC ACID [Concomitant]
     Indication: PROPHYLAXIS
     Dosage: UNK UKN, UNK
     Dates: start: 20130220
  3. AMLODIPINE [Concomitant]
     Indication: HYPERTENSION
     Dosage: UNK UKN, UNK
     Dates: start: 20120926
  4. ATENOLOL [Concomitant]
     Indication: HYPERTENSION
     Dosage: UNK UKN, UNK
     Dates: start: 20131120, end: 20131218
  5. ATROPINE [Concomitant]
     Indication: ACUTE PULMONARY OEDEMA
     Dosage: UNK UKN, UNK
     Dates: start: 20131216, end: 20131216
  6. ATROPINE [Concomitant]
     Indication: SINUS BRADYCARDIA
     Dosage: UNK UKN, UNK
     Dates: start: 20140103, end: 20140103
  7. CALCIUM CHLORIDE [Concomitant]
     Indication: HYPOCALCAEMIA
     Dosage: UNK UKN, UNK
     Dates: start: 20140103, end: 20140103
  8. CEFAZOLIN [Concomitant]
     Indication: PROPHYLAXIS
     Dosage: UNK UKN, UNK
     Dates: start: 20140107, end: 20140107
  9. FUROSEMIDE [Concomitant]
     Indication: ACUTE PULMONARY OEDEMA
     Dosage: UNK UKN, UNK
     Dates: start: 20131216, end: 20131220
  10. FUROSEMIDE [Concomitant]
     Indication: PLEURAL EFFUSION
     Dosage: UNK UKN, UNK
     Dates: start: 20140105
  11. HYDROCHLOROTHIAZIDE [Concomitant]
     Indication: HYPERTENSION
     Dosage: UNK UKN, UNK
     Dates: start: 20130930, end: 20131025
  12. HYDROCHLOROTHIAZIDE [Concomitant]
     Dosage: UNK UKN, UNK
     Dates: start: 20140102
  13. ISOSORBIDE DINITRATE [Concomitant]
     Indication: ACUTE PULMONARY OEDEMA
     Dosage: UNK UKN, UNK
     Dates: start: 20131216, end: 20131217
  14. LOSARTAN [Concomitant]
     Indication: HYPERTENSION
     Dosage: UNK UKN, UNK
     Dates: start: 20130513, end: 20130902
  15. LOSARTAN POTASSIUM AND HYDROCHLOROTHIAZIDE [Concomitant]
     Indication: HYPERTENSION
     Dosage: UNK UKN, UNK
     Dates: start: 20130902, end: 20131025
  16. NIFEDIPINE [Concomitant]
     Indication: HYPERTENSION
     Dosage: UNK UKN, UNK
     Dates: start: 20130513, end: 20131014
  17. NORVASC [Concomitant]
     Indication: HYPERTENSION
     Dosage: UNK UKN, UNK
     Dates: start: 20120808, end: 20120925
  18. QUINAPRIL [Concomitant]
     Indication: HYPERTENSION
     Dosage: UNK UKN, UNK
     Dates: start: 20120926, end: 20121218
  19. TAMLOSIN [Concomitant]
     Indication: BENIGN PROSTATIC HYPERPLASIA
     Dosage: UNK UKN, UNK
     Dates: start: 20130123, end: 20130805
  20. TAMLOSIN [Concomitant]
     Dosage: UNK UKN, UNK
     Dates: start: 20131120, end: 20131218
  21. XANAX [Concomitant]
     Indication: ANXIETY
     Dosage: UNK UKN, UNK
     Dates: start: 20120307, end: 20120731
  22. XANAX [Concomitant]
     Dosage: UNK UKN, UNK
     Dates: start: 20131023

REACTIONS (5)
  - Cardiac valve disease [Unknown]
  - Ischaemia [Recovering/Resolving]
  - Palpitations [Recovering/Resolving]
  - Chest discomfort [Recovering/Resolving]
  - Upper respiratory tract infection [Unknown]
